FAERS Safety Report 15408840 (Version 1)
Quarter: 2018Q3

REPORT INFORMATION
  Report Type: Spontaneous
  Country: JP (occurrence: JP)
  Receive Date: 20180920
  Receipt Date: 20180920
  Transmission Date: 20181010
  Serious: Yes (Other)
  Sender: FDA-Public Use
  Company Number: JP-ASTRAZENECA-2018SF18792

PATIENT

DRUGS (1)
  1. TAGRISSO [Suspect]
     Active Substance: OSIMERTINIB
     Indication: NON-SMALL CELL LUNG CANCER
     Route: 048
     Dates: start: 2017

REACTIONS (3)
  - Chest X-ray abnormal [Unknown]
  - Interstitial lung disease [Unknown]
  - Metastases to lung [Unknown]

NARRATIVE: CASE EVENT DATE: 20180815
